FAERS Safety Report 8540378-0 (Version None)
Quarter: 2012Q3

REPORT INFORMATION
  Report Type: 
  Country: None (occurrence: None)
  Receive Date: 20120726
  Receipt Date: 20120111
  Transmission Date: 20120928
  Serious: No
  Sender: FDA-Public Use
  Company Number: US-ASTRAZENECA-2010SE58887

PATIENT
  Age: 48 Year
  Sex: Male

DRUGS (2)
  1. SEROQUEL [Suspect]
     Route: 048
  2. SEROQUEL [Suspect]
     Route: 048

REACTIONS (9)
  - MALAISE [None]
  - ABNORMAL BEHAVIOUR [None]
  - DIABETES MELLITUS [None]
  - DRUG DOSE OMISSION [None]
  - WEIGHT DECREASED [None]
  - MOOD SWINGS [None]
  - PNEUMONIA [None]
  - HALLUCINATION, AUDITORY [None]
  - DRUG EFFECT DECREASED [None]
